FAERS Safety Report 13551064 (Version 2)
Quarter: 2017Q2

REPORT INFORMATION
  Report Type: Spontaneous
  Country: US (occurrence: US)
  Receive Date: 20170516
  Receipt Date: 20170529
  Transmission Date: 20170830
  Serious: Yes (Life-Threatening, Hospitalization)
  Sender: FDA-Public Use
  Company Number: US-009507513-1705USA005230

PATIENT
  Age: 55 Year
  Sex: Female
  Weight: 74.4 kg

DRUGS (1)
  1. BRIDION [Suspect]
     Active Substance: SUGAMMADEX
     Indication: NEUROMUSCULAR BLOCKADE REVERSAL
     Dosage: 1.34 MG/KG, PRN
     Route: 040
     Dates: start: 20161225, end: 20161225

REACTIONS (6)
  - Oedema mouth [Not Recovered/Not Resolved]
  - Stridor [Not Recovered/Not Resolved]
  - Lip oedema [Not Recovered/Not Resolved]
  - Anaphylactic reaction [Not Recovered/Not Resolved]
  - Eye oedema [Not Recovered/Not Resolved]
  - Subcutaneous emphysema [Not Recovered/Not Resolved]

NARRATIVE: CASE EVENT DATE: 20161225
